FAERS Safety Report 15665728 (Version 1)
Quarter: 2018Q4

REPORT INFORMATION
  Report Type: Spontaneous
  Country: US (occurrence: US)
  Receive Date: 20181119
  Receipt Date: 20181119
  Transmission Date: 20190205
  Serious: No
  Sender: FDA-Public Use
  Company Number: None

PATIENT
  Age: 60 Year
  Sex: Female

DRUGS (4)
  1. AMLODIPINE [Concomitant]
     Active Substance: AMLODIPINE BESYLATE
  2. KEPPRA [Concomitant]
     Active Substance: LEVETIRACETAM
  3. ATORVASTATIN [Concomitant]
     Active Substance: ATORVASTATIN
  4. TEMOZOLOMIDE 5 MG  CAP [Suspect]
     Active Substance: TEMOZOLOMIDE
     Dates: start: 20171019

REACTIONS (1)
  - Brain neoplasm [None]

NARRATIVE: CASE EVENT DATE: 20181116
